FAERS Safety Report 8348828-X (Version None)
Quarter: 2012Q2

REPORT INFORMATION
  Report Type: 
  Country: None (occurrence: None)
  Receive Date: 20120508
  Receipt Date: 20120423
  Transmission Date: 20120825
  Serious: Yes (Other)
  Sender: FDA-Public Use
  Company Number: JPI-P-020368

PATIENT
  Age: 77 Year
  Sex: Female
  Weight: 58.514 kg

DRUGS (13)
  1. FEXPFENADINE HYDROCHLORIDE [Concomitant]
  2. POLYETHYLENE GLYCOL [Concomitant]
  3. ZOLPIDEM TARTRATE [Concomitant]
  4. LEVOTHYROXINE SODIUM [Concomitant]
  5. METOPROLOL TARTRATE [Concomitant]
  6. FUROSEMIDE [Concomitant]
  7. TRETINOIN [Concomitant]
  8. XYREM [Suspect]
     Indication: APNOEA
     Dosage: 9 GM (4.5 GM,2 IN 1 D),ORAL
     Route: 048
     Dates: start: 20100318
  9. OMEPRAZOLE [Concomitant]
  10. KETOCONAZOLE [Concomitant]
  11. CYCLOSPORINE [Concomitant]
  12. EZETIMIBE [Concomitant]
  13. DEXLANSOPRAZOLE [Concomitant]

REACTIONS (9)
  - ABDOMINAL HERNIA OBSTRUCTIVE [None]
  - CEREBROVASCULAR ACCIDENT [None]
  - DYSTONIA [None]
  - AGITATION [None]
  - ASTHENIA [None]
  - HALLUCINATION [None]
  - FALL [None]
  - HYPOXIA [None]
  - SCRATCH [None]
